FAERS Safety Report 7306258-3 (Version None)
Quarter: 2011Q1

REPORT INFORMATION
  Report Type: 
  Country: None (occurrence: None)
  Receive Date: 20110209
  Receipt Date: 20110124
  Transmission Date: 20110831
  Serious: Yes (Other)
  Sender: FDA-Public Use
  Company Number: PHHY2011US05478

PATIENT
  Age: 27 Year
  Sex: Female

DRUGS (1)
  1. VISUDYNE [Suspect]
     Indication: VON HIPPEL-LINDAU DISEASE
     Dosage: 6 MG/M^2 ONCE IV
     Route: 042

REACTIONS (2)
  - RETINAL HAEMORRHAGE [None]
  - MACULAR OEDEMA [None]
